FAERS Safety Report 8297854 (Version 5)
Quarter: 2013Q2

REPORT INFORMATION
  Report Type: Report from Study
  Country: FR (occurrence: FR)
  Receive Date: 20111219
  Receipt Date: 20130411
  Transmission Date: 20140414
  Serious: Yes (Hospitalization)
  Sender: FDA-Public Use
  Company Number: FR-CELGENEUS-056-21880-11120679

PATIENT
  Age: 61 Year
  Sex: Male

DRUGS (18)
  1. REVLIMID [Suspect]
     Indication: PLASMA CELL MYELOMA
     Dosage: 25 MILLIGRAM
     Route: 048
     Dates: start: 20111107
  2. REVLIMID [Suspect]
     Dosage: 25 MILLIGRAM
     Route: 048
     Dates: start: 20111129, end: 20111204
  3. BORTEZOMIB [Suspect]
     Indication: PLASMA CELL MYELOMA
     Dosage: G/M2
     Route: 065
     Dates: start: 20111107, end: 20111205
  4. BORTEZOMIB [Suspect]
     Dosage: G/M2
     Route: 065
     Dates: start: 20111129
  5. BORTEZOMIB [Suspect]
     Dosage: G/M2
     Route: 065
     Dates: start: 20120117
  6. BORTEZOMIB [Suspect]
     Dosage: G/M2
     Route: 065
     Dates: start: 20120120
  7. BORTEZOMIB [Suspect]
     Dosage: G/M2
     Route: 065
     Dates: start: 20120601
  8. DEXAMETHASONE [Suspect]
     Indication: PLASMA CELL MYELOMA
     Dosage: 20 MILLIGRAM
     Route: 065
     Dates: start: 20111107
  9. DEXAMETHASONE [Suspect]
     Dosage: 20 MILLIGRAM
     Route: 065
     Dates: start: 20111129
  10. DEXAMETHASONE [Suspect]
     Dosage: 20 MILLIGRAM
     Route: 065
     Dates: start: 20120117
  11. DEXAMETHASONE [Suspect]
     Dosage: 20 MILLIGRAM
     Route: 065
     Dates: start: 20120120
  12. DEXAMETHASONE [Suspect]
     Dosage: 20 MILLIGRAM
     Route: 065
     Dates: start: 20120601
  13. BACTRIM [Suspect]
     Indication: PROPHYLAXIS
     Dosage: 800 MILLIGRAM
     Route: 048
     Dates: start: 20111107, end: 20111129
  14. CLAMOXYL [Suspect]
     Indication: PROPHYLAXIS
     Dosage: 500 MILLIGRAM
     Route: 048
     Dates: start: 20111107, end: 20111129
  15. INNOHEP [Concomitant]
     Indication: PLASMA CELL MYELOMA
     Dosage: .35 MILLILITER
     Route: 058
     Dates: start: 20111107
  16. ZELITREX [Concomitant]
     Indication: PROPHYLAXIS
     Dosage: 500 MILLIGRAM
     Route: 048
     Dates: start: 20111107, end: 20111129
  17. ZELITREX [Concomitant]
     Dosage: 500 MILLIGRAM
     Route: 048
     Dates: end: 20111223
  18. LEDERFOLINE [Concomitant]
     Indication: PROPHYLAXIS
     Dosage: 25 MILLIGRAM
     Route: 048
     Dates: start: 20111107, end: 20111129

REACTIONS (3)
  - Pyrexia [Recovered/Resolved]
  - General physical health deterioration [Recovered/Resolved]
  - Drug reaction with eosinophilia and systemic symptoms [Recovered/Resolved with Sequelae]
